FAERS Safety Report 24041030 (Version 3)
Quarter: 2024Q3

REPORT INFORMATION
  Report Type: Spontaneous
  Country: SK (occurrence: SK)
  Receive Date: 20240702
  Receipt Date: 20240805
  Transmission Date: 20241016
  Serious: Yes (Other)
  Sender: NOVARTIS
  Company Number: SK-002147023-NVSC2024SK135121

PATIENT
  Age: 17 Year
  Sex: Female

DRUGS (6)
  1. FINGOLIMOD [Suspect]
     Active Substance: FINGOLIMOD
     Indication: Relapsing-remitting multiple sclerosis
     Dosage: UNK UNK, QD
     Route: 065
     Dates: start: 201906, end: 202209
  2. FLUOXETINE [Concomitant]
     Active Substance: FLUOXETINE HYDROCHLORIDE
     Indication: Product used for unknown indication
     Dosage: UNK
     Route: 065
  3. QUETIAPINE FUMARATE [Concomitant]
     Active Substance: QUETIAPINE FUMARATE
     Indication: Product used for unknown indication
     Dosage: UNK
     Route: 065
  4. MILGAMMA [Concomitant]
     Indication: Product used for unknown indication
     Dosage: UNK
     Route: 065
  5. BISEPTOL [Concomitant]
     Active Substance: SULFAMETHOXAZOLE\TRIMETHOPRIM
     Indication: Product used for unknown indication
     Dosage: UNK
     Route: 065
  6. LEVETIRACETAM [Concomitant]
     Active Substance: LEVETIRACETAM
     Indication: Product used for unknown indication
     Dosage: UNK
     Route: 065

REACTIONS (7)
  - Relapsing-remitting multiple sclerosis [Recovering/Resolving]
  - Disease progression [Recovering/Resolving]
  - Neurogenic bladder [Recovering/Resolving]
  - Epileptic encephalopathy [Not Recovered/Not Resolved]
  - Motor dysfunction [Recovered/Resolved]
  - Cognitive disorder [Recovered/Resolved]
  - Therapy partial responder [Recovering/Resolving]

NARRATIVE: CASE EVENT DATE: 20220101
